FAERS Safety Report 5940067-2 (Version None)
Quarter: 2008Q4

REPORT INFORMATION
  Report Type: 
  Country: None (occurrence: None)
  Receive Date: 20081104
  Receipt Date: 20081027
  Transmission Date: 20090506
  Serious: Yes (Hospitalization)
  Sender: FDA-Public Use
  Company Number: PHHY2008FR26126

PATIENT
  Sex: Female

DRUGS (1)
  1. PARLODEL [Suspect]
     Indication: LACTATION PUERPERAL INCREASED
     Dosage: 2.5 MG, UNK
     Route: 048
     Dates: end: 20080714

REACTIONS (5)
  - BRAIN SCAN ABNORMAL [None]
  - HEADACHE [None]
  - MENINGISM [None]
  - MENINGORRHAGIA [None]
  - SUBARACHNOID HAEMORRHAGE [None]
